FAERS Safety Report 5964224-4 (Version None)
Quarter: 2008Q4

REPORT INFORMATION
  Report Type: 
  Country: None (occurrence: None)
  Receive Date: 20081124
  Receipt Date: 20081117
  Transmission Date: 20090506
  Serious: Yes (Hospitalization)
  Sender: FDA-Public Use
  Company Number: US-ABBOTT-08P-163-0488013-00

PATIENT
  Sex: Female

DRUGS (2)
  1. HUMIRA [Suspect]
     Indication: CROHN'S DISEASE
     Dates: start: 20080501, end: 20080701
  2. HUMIRA [Suspect]
     Dates: start: 20080801

REACTIONS (2)
  - DRUG DELIVERY SYSTEM MALFUNCTION [None]
  - INTESTINAL OBSTRUCTION [None]
